FAERS Safety Report 16973855 (Version 2)
Quarter: 2020Q1

REPORT INFORMATION
  Report Type: Spontaneous
  Country: IT (occurrence: IT)
  Receive Date: 20191030
  Receipt Date: 20200115
  Transmission Date: 20200409
  Serious: Yes (Other)
  Sender: FDA-Public Use
  Company Number: IT-SUN PHARMACEUTICAL INDUSTRIES LTD-2019RR-225404

PATIENT
  Age: 27 Year
  Sex: Female

DRUGS (2)
  1. SONGAR [Suspect]
     Active Substance: TRIAZOLAM
     Indication: INTENTIONAL SELF-INJURY
     Dosage: 7 MG, UNKNOWN
     Route: 048
     Dates: start: 20190720, end: 20190720
  2. VENLAFAXINE [Suspect]
     Active Substance: VENLAFAXINE HYDROCHLORIDE
     Indication: INTENTIONAL SELF-INJURY
     Dosage: 150 MG, UNKNOWN
     Route: 048
     Dates: start: 20190720, end: 20190720

REACTIONS (2)
  - Drug abuse [Recovering/Resolving]
  - Sopor [Recovering/Resolving]

NARRATIVE: CASE EVENT DATE: 20190720
